FAERS Safety Report 7747725-8 (Version None)
Quarter: 2011Q3

REPORT INFORMATION
  Report Type: 
  Country: None (occurrence: None)
  Receive Date: 20110913
  Receipt Date: 20110902
  Transmission Date: 20111222
  Serious: Yes (Other)
  Sender: FDA-Public Use
  Company Number: PHHY2011GB78238

PATIENT
  Age: 76 Year
  Sex: Male

DRUGS (17)
  1. FINASTERIDE [Suspect]
     Dosage: 5 MG, UNK
     Route: 048
     Dates: start: 20091229
  2. FINASTERIDE [Suspect]
     Dosage: 5 MG, UNK
     Route: 048
     Dates: start: 20100219
  3. FINASTERIDE [Suspect]
     Dosage: 5 MG, UNK
     Route: 048
     Dates: start: 20091127
  4. FINASTERIDE [Suspect]
     Dosage: 5 MG, UNK
     Route: 048
     Dates: start: 20100323
  5. FINASTERIDE [Suspect]
     Dosage: 5 MG, UNK
     Route: 048
     Dates: start: 20100414
  6. ACETYLSALICYLIC ACID SRT [Suspect]
     Dosage: 75 MG, UNK
     Route: 065
     Dates: start: 20110517
  7. FINASTERIDE [Suspect]
     Dosage: 5 MG, UNK
     Route: 048
     Dates: start: 20100519
  8. FINASTERIDE [Suspect]
     Dosage: 5 MG, UNK
     Route: 048
     Dates: start: 20100616
  9. FINASTERIDE [Suspect]
     Dosage: 5 MG, UNK
     Route: 048
     Dates: start: 20110810
  10. LOSARTAN POTASSIUM [Suspect]
     Dosage: 100 MG, QD
     Dates: start: 20110713
  11. SIMVASTATIN [Suspect]
     Dosage: 40 MG, QD
     Dates: start: 20110704
  12. SENNA UNKNOWN MANUFACTURER [Suspect]
     Dosage: 7.5 MG, UNK
  13. TAMSULOSIN HCL [Suspect]
     Route: 065
  14. CANDESARTAN CILEXETIL [Suspect]
  15. BETA BLOCKING AGENTS [Suspect]
  16. FINASTERIDE [Suspect]
     Dosage: 5 MG, UNK
     Route: 048
     Dates: start: 20100119
  17. FLECAINIDE ACETATE [Concomitant]
     Dosage: 50 MG, BID

REACTIONS (9)
  - VENTRICULAR EXTRASYSTOLES [None]
  - HEART VALVE INCOMPETENCE [None]
  - BLOOD PRESSURE ABNORMAL [None]
  - DIZZINESS POSTURAL [None]
  - LOSS OF CONSCIOUSNESS [None]
  - ATRIOVENTRICULAR BLOCK FIRST DEGREE [None]
  - HAEMATURIA [None]
  - HEART RATE ABNORMAL [None]
  - ELECTROCARDIOGRAM PR PROLONGATION [None]
